FAERS Safety Report 7278550-2 (Version None)
Quarter: 2011Q1

REPORT INFORMATION
  Report Type: 
  Country: None (occurrence: None)
  Receive Date: 20110207
  Receipt Date: 20110128
  Transmission Date: 20110831
  Serious: Yes (Death, Other)
  Sender: FDA-Public Use
  Company Number: PHHY2011ES02741

PATIENT
  Age: 52 Year
  Sex: Male

DRUGS (4)
  1. CLARITHROMYCIN [Suspect]
     Indication: TOOTH ABSCESS
     Dosage: 500MG EVERY 12 HOURS
  2. COLCHICINE [Interacting]
     Dosage: 12 MG, TAKEN OVER FOR 24 HOURS
  3. COLCHICINE [Interacting]
     Dosage: 1 MG, DAILY
  4. CLARITHROMYCIN [Interacting]
     Dosage: 12MG IN 24 HOURS

REACTIONS (9)
  - TOXICITY TO VARIOUS AGENTS [None]
  - MULTI-ORGAN FAILURE [None]
  - NEUTROPENIA [None]
  - HEPATITIS TOXIC [None]
  - DRUG INTERACTION [None]
  - LACTIC ACIDOSIS [None]
  - RENAL FAILURE [None]
  - THROMBOCYTOPENIA [None]
  - ACUTE RESPIRATORY DISTRESS SYNDROME [None]
